FAERS Safety Report 8524664-6 (Version None)
Quarter: 2012Q3

REPORT INFORMATION
  Report Type: 
  Country: None (occurrence: None)
  Receive Date: 20120720
  Receipt Date: 20120711
  Transmission Date: 20120928
  Serious: Yes (Hospitalization)
  Sender: FDA-Public Use
  Company Number: IT-ASTRAZENECA-2012SE48031

PATIENT
  Age: 16688 Day
  Sex: Male

DRUGS (5)
  1. CLONAZEPAM [Concomitant]
  2. LORAZEPAM [Concomitant]
  3. AKINETON [Concomitant]
  4. SEROQUEL [Suspect]
     Indication: PSYCHOTIC DISORDER
     Dosage: 8 G ONCE/SINGLE ADMINISTRATION
     Route: 048
     Dates: start: 20120708, end: 20120708
  5. XANAX [Concomitant]

REACTIONS (4)
  - PSYCHOMOTOR HYPERACTIVITY [None]
  - SOPOR [None]
  - OVERDOSE [None]
  - TACHYCARDIA [None]
